FAERS Safety Report 6434759-9 (Version None)
Quarter: 2009Q4

REPORT INFORMATION
  Report Type: 
  Country: None (occurrence: None)
  Receive Date: 20091110
  Receipt Date: 20091029
  Transmission Date: 20100525
  Serious: Yes (Death, Life-Threatening)
  Sender: FDA-Public Use
  Company Number: JP-PFIZER INC-2009287699

PATIENT
  Age: 57 Year
  Sex: Male
  Weight: 56 kg

DRUGS (9)
  1. CAMPTOSAR [Suspect]
     Indication: COLON CANCER
     Dosage: 150 MG/M2, (240MG/BODY
     Route: 041
     Dates: start: 20090929, end: 20090929
  2. CALCIUM LEVOFOLINATE [Concomitant]
     Indication: COLON CANCER
     Dosage: 200 MG/M2, (320MG/BODY )
     Route: 041
     Dates: start: 20090929, end: 20090929
  3. FLUOROURACIL [Concomitant]
     Indication: COLON CANCER
     Dosage: 400 MG/M2, (640MG/BODY )
     Route: 040
     Dates: start: 20090929, end: 20090929
  4. FLUOROURACIL [Concomitant]
     Dosage: 2400 MG/M2, (3840MG/BODY) D1-2
     Route: 041
     Dates: start: 20090929, end: 20090929
  5. ERBITUX [Concomitant]
     Indication: COLON CANCER
     Dosage: 400 MG/M2, (640MG/BODY)
     Route: 041
     Dates: start: 20090929, end: 20090929
  6. KYTRIL [Concomitant]
     Indication: PREMEDICATION
     Dosage: 3 MG, UNK
     Route: 041
     Dates: start: 20090929, end: 20090929
  7. DECADRON #1 [Concomitant]
     Indication: PREMEDICATION
     Dosage: 4 MG, UNK
     Route: 041
     Dates: start: 20090929, end: 20090929
  8. MODACIN [Concomitant]
     Indication: ANTIBIOTIC THERAPY
     Dosage: 1 G, 2X/DAY
     Route: 041
     Dates: start: 20091005, end: 20091006
  9. MEROPEN [Concomitant]
     Indication: ANTIBIOTIC THERAPY
     Dosage: UNK
     Route: 041
     Dates: start: 20091007

REACTIONS (4)
  - DIARRHOEA [None]
  - HEPATIC FUNCTION ABNORMAL [None]
  - HYPERKALAEMIA [None]
  - PANCYTOPENIA [None]
